FAERS Safety Report 15928278 (Version 4)
Quarter: 2019Q1

REPORT INFORMATION
  Report Type: Spontaneous
  Country: AT (occurrence: AT)
  Receive Date: 20190206
  Receipt Date: 20190221
  Transmission Date: 20190417
  Serious: Yes (Other)
  Sender: FDA-Public Use
  Company Number: AT-PFIZER INC-2019049999

PATIENT
  Age: 67 Year
  Sex: Male

DRUGS (38)
  1. PANTOPRAZOLE [Suspect]
     Active Substance: PANTOPRAZOLE
     Dosage: 40 MG, 1X/DAY (1-0-0)
     Route: 065
     Dates: start: 201308, end: 201309
  2. PANTOPRAZOLE [Suspect]
     Active Substance: PANTOPRAZOLE
     Dosage: 40 MG, 2X/DAILY (1-0-1)
     Route: 065
  3. EFFENTORA [Suspect]
     Active Substance: FENTANYL CITRATE
     Dosage: 100 UG, 4X/DAY
     Route: 065
     Dates: start: 201308, end: 201309
  4. EFFENTORA [Suspect]
     Active Substance: FENTANYL CITRATE
     Dosage: 600 UG, UNK
     Route: 065
     Dates: start: 20161014, end: 20161102
  5. EFFENTORA [Suspect]
     Active Substance: FENTANYL CITRATE
     Dosage: 400 UG, UNK (2-3 TIMES DAILY)
     Route: 065
  6. IMODIUM [Suspect]
     Active Substance: LOPERAMIDE HYDROCHLORIDE
     Dosage: UNK
     Route: 065
  7. METOCLOPRAMIDE. [Suspect]
     Active Substance: METOCLOPRAMIDE
     Dosage: UNK
     Route: 065
     Dates: start: 201308, end: 201309
  8. HYDAL [Suspect]
     Active Substance: HYDROMORPHONE HYDROCHLORIDE
     Dosage: 5.2 MG, UNK (UP TP 4 TIMES DAILY)
     Route: 065
     Dates: start: 201308, end: 201309
  9. LYRICA [Suspect]
     Active Substance: PREGABALIN
     Dosage: 75 MG, 1X/DAY (0-0-1)
     Route: 065
  10. BUPRENORPHINE. [Suspect]
     Active Substance: BUPRENORPHINE
     Dosage: 140 UG, UNK
     Route: 062
     Dates: start: 20150824, end: 20150828
  11. QUETIAPINE. [Suspect]
     Active Substance: QUETIAPINE
     Dosage: 25 MG, 1X/DAY (0-0-1)
     Route: 065
  12. ONDANSETRON HYDROCHLORIDE. [Suspect]
     Active Substance: ONDANSETRON HYDROCHLORIDE
     Dosage: UNK
     Route: 065
  13. BUPRENORPHINE. [Suspect]
     Active Substance: BUPRENORPHINE
     Dosage: 105 UG, UNK
     Route: 062
     Dates: start: 201308, end: 201309
  14. BUPRENORPHINE. [Suspect]
     Active Substance: BUPRENORPHINE
     Dosage: 70 UG, UNK
     Route: 062
     Dates: start: 20130826, end: 20130919
  15. DULOXETINE. [Suspect]
     Active Substance: DULOXETINE
     Dosage: 60 MG, UNK (2-0-0)
     Route: 065
  16. TEMESTA [LORAZEPAM] [Suspect]
     Active Substance: LORAZEPAM
     Dosage: 2.5 MG, UNK
  17. PANTOPRAZOLE [Suspect]
     Active Substance: PANTOPRAZOLE
     Dosage: 40 MG, 1X/DAY (1-0-0)
     Route: 065
  18. BUPRENORPHINE. [Suspect]
     Active Substance: BUPRENORPHINE
     Dosage: 140 UG, UNK
     Route: 062
     Dates: start: 20161014, end: 20161102
  19. DULOXETINE. [Suspect]
     Active Substance: DULOXETINE
     Dosage: 60 MG, 2X/DAY (1-0-1)
     Route: 065
     Dates: start: 201308, end: 201309
  20. SUBOXONE [Suspect]
     Active Substance: BUPRENORPHINE HYDROCHLORIDE\NALOXONE HYDROCHLORIDE
     Dosage: UNK
  21. SUBOXONE [Suspect]
     Active Substance: BUPRENORPHINE HYDROCHLORIDE\NALOXONE HYDROCHLORIDE
     Indication: PAIN
     Dosage: (2 MG / 0.5 MG UP TO 6 TIMES DAILY)
     Route: 065
     Dates: start: 201601, end: 201601
  22. EFFENTORA [Suspect]
     Active Substance: FENTANYL CITRATE
     Dosage: 400 UG, UNK (UP TO 3 TIMES DAILY)
     Route: 065
     Dates: start: 20150824, end: 20150828
  23. CATAPRESAN [CLONIDINE] [Suspect]
     Active Substance: CLONIDINE
     Dosage: 0.15 MG, AS NEEDED
     Route: 065
  24. DIPIDOLOR [Suspect]
     Active Substance: PIRITRAMIDE
     Dosage: 15 MG, UNK
     Route: 065
  25. SEROQUEL [Suspect]
     Active Substance: QUETIAPINE FUMARATE
     Dosage: 100 MG, 1X/DAY
     Route: 065
     Dates: start: 20150824, end: 20150828
  26. SUBOXONE [Suspect]
     Active Substance: BUPRENORPHINE HYDROCHLORIDE\NALOXONE HYDROCHLORIDE
     Dosage: (8 MG / 2 MG UNK)
     Route: 060
  27. SUBOXONE [Suspect]
     Active Substance: BUPRENORPHINE HYDROCHLORIDE\NALOXONE HYDROCHLORIDE
     Dosage: (12 MG - 0 - 4 MG)
     Route: 065
     Dates: start: 201601, end: 201601
  28. SUBOXONE [Suspect]
     Active Substance: BUPRENORPHINE HYDROCHLORIDE\NALOXONE HYDROCHLORIDE
     Dosage: (2 MG / 0.5 MG UP TO 4 TIMES IN CASE OF PAIN ATTACK)
     Route: 065
  29. TEMESTA [LORAZEPAM] [Suspect]
     Active Substance: LORAZEPAM
     Dosage: 2.5 MG, UNK
     Dates: start: 201308, end: 201309
  30. SEROQUEL [Suspect]
     Active Substance: QUETIAPINE FUMARATE
     Dosage: 25 MG, 1X/DAY (0-0-0-1)
     Route: 065
  31. SOLUVIT /01591701/ [Suspect]
     Active Substance: VITAMINS
     Dosage: UNK
     Route: 065
  32. MIRTAZAPIN [Suspect]
     Active Substance: MIRTAZAPINE
     Dosage: UNK
     Route: 065
  33. DRONABINOL. [Suspect]
     Active Substance: DRONABINOL
     Dosage: UNK (6 DROP, 3 TIMES)
     Route: 065
     Dates: start: 201308, end: 201309
  34. EFFENTORA [Suspect]
     Active Substance: FENTANYL CITRATE
     Dosage: 400 UG, UNK (2 TABLETS)
     Route: 065
     Dates: start: 20150824, end: 20150828
  35. HYDAL [Suspect]
     Active Substance: HYDROMORPHONE HYDROCHLORIDE
     Dosage: 5.2 MG, UNK (2-3 TIMES DAILY)
     Route: 065
     Dates: start: 201308, end: 201309
  36. MIRTAZAPIN [Suspect]
     Active Substance: MIRTAZAPINE
     Dosage: UNK
  37. HYDAL [Suspect]
     Active Substance: HYDROMORPHONE HYDROCHLORIDE
     Dosage: 5.2 MG, UNK (UP TO 3 TIMES DAILY)
     Route: 065
  38. LEXOTANIL [Suspect]
     Active Substance: BROMAZEPAM
     Dosage: 3 MG, UNK (1/2-0-0)
     Route: 065

REACTIONS (11)
  - Drug withdrawal syndrome [Recovered/Resolved]
  - Nausea [Unknown]
  - Abdominal distension [Unknown]
  - Drug dependence [Unknown]
  - Decreased appetite [Unknown]
  - Diarrhoea [Unknown]
  - Depression [Unknown]
  - Therapeutic response decreased [Unknown]
  - Abdominal pain [Unknown]
  - Vertigo [Unknown]
  - Tremor [Unknown]
